FAERS Safety Report 9942631 (Version 1)
Quarter: 2014Q1

REPORT INFORMATION
  Report Type: Report from Study
  Country: US (occurrence: US)
  Receive Date: 20140303
  Receipt Date: 20140303
  Transmission Date: 20141002
  Serious: No
  Sender: FDA-Public Use
  Company Number: US-ABBVIE-13P-163-1046398-00

PATIENT
  Age: 31 Year
  Sex: Male

DRUGS (2)
  1. HUMIRA [Suspect]
     Indication: COLITIS ULCERATIVE
     Dates: start: 2010
  2. HUMIRA [Suspect]
     Indication: ANKYLOSING SPONDYLITIS

REACTIONS (5)
  - Pyrexia [Recovered/Resolved]
  - Cold sweat [Recovered/Resolved]
  - Pain [Recovered/Resolved]
  - Night sweats [Recovered/Resolved]
  - Influenza [Recovered/Resolved]
